FAERS Safety Report 6570386-0 (Version None)
Quarter: 2010Q1

REPORT INFORMATION
  Report Type: 
  Country: None (occurrence: None)
  Receive Date: 20100204
  Receipt Date: 20090114
  Transmission Date: 20100710
  Serious: No
  Sender: FDA-Public Use
  Company Number: A0763610A

PATIENT
  Age: 52 Year
  Sex: Female

DRUGS (12)
  1. ARIXTRA [Suspect]
     Indication: PULMONARY EMBOLISM
     Dosage: 10MG PER DAY
     Route: 058
     Dates: start: 20090109, end: 20090111
  2. PLAVIX [Concomitant]
  3. ZOLOFT [Concomitant]
  4. BETAPACE [Concomitant]
  5. LOPRESSOR [Concomitant]
  6. RAMIPRIL [Concomitant]
  7. LASIX [Concomitant]
  8. XANAX [Concomitant]
  9. COMPAZINE [Concomitant]
  10. TAXOTERE [Concomitant]
  11. CYTOXAN [Concomitant]
  12. ISORDIL [Concomitant]

REACTIONS (3)
  - ERYTHEMA [None]
  - RASH [None]
  - URTICARIA [None]
